FAERS Safety Report 6858391-8 (Version None)
Quarter: 2010Q3

REPORT INFORMATION
  Report Type: 
  Country: None (occurrence: None)
  Receive Date: 20100719
  Receipt Date: 20080210
  Transmission Date: 20110219
  Serious: No
  Sender: FDA-Public Use
  Company Number: US-PFIZER INC-2008013748

PATIENT
  Age: 24 Year
  Sex: Female

DRUGS (3)
  1. CHANTIX [Suspect]
     Indication: SMOKING CESSATION THERAPY
     Route: 048
     Dates: start: 20080101
  2. ALL OTHER THERAPEUTIC PRODUCTS [Concomitant]
     Dates: end: 20080101
  3. ANTIDEPRESSANTS [Concomitant]
     Dates: end: 20080101

REACTIONS (9)
  - ABNORMAL DREAMS [None]
  - CRYING [None]
  - DISTURBANCE IN ATTENTION [None]
  - FATIGUE [None]
  - FEELING ABNORMAL [None]
  - HEADACHE [None]
  - HYPERSOMNIA [None]
  - INSOMNIA [None]
  - VERTIGO [None]
